FAERS Safety Report 9501993 (Version 4)
Quarter: 2013Q4

REPORT INFORMATION
  Report Type: Report from Study
  Country: BR (occurrence: BR)
  Receive Date: 20130905
  Receipt Date: 20131002
  Transmission Date: 20140711
  Serious: Yes (Hospitalization, Disabling)
  Sender: FDA-Public Use
  Company Number: BR-ROCHE-1268105

PATIENT
  Age: 60 Year
  Sex: Female
  Weight: 59.3 kg

DRUGS (17)
  1. RITUXIMAB [Suspect]
     Indication: CHRONIC LYMPHOCYTIC LEUKAEMIA
     Dosage: DOSE OF LAST RITUXIMAB TAKEN: 775 MG ON 30/JUL/2013.
     Route: 042
     Dates: start: 20130423
  2. HYDROCHLOROTHIAZIDE [Concomitant]
     Indication: HYPERTENSION
     Route: 065
     Dates: start: 2008
  3. BACTRIM [Concomitant]
     Route: 065
     Dates: start: 20130428
  4. ALLOPURINOL [Concomitant]
     Indication: TUMOUR LYSIS SYNDROME
     Route: 065
     Dates: start: 20130428
  5. ONDANSETRON [Concomitant]
     Indication: NAUSEA
     Route: 065
     Dates: start: 20130416
  6. ONDANSETRON [Concomitant]
     Indication: ABDOMINAL PAIN UPPER
     Route: 065
     Dates: start: 20130815
  7. OMEPRAZOLE [Concomitant]
     Indication: GASTRITIS
     Route: 065
     Dates: start: 20130423
  8. OMEPRAZOLE [Concomitant]
     Route: 065
     Dates: start: 20130815
  9. CAPTOPRIL [Concomitant]
     Indication: HYPERTENSION
     Route: 065
     Dates: start: 2008
  10. DIPYRONE [Concomitant]
     Route: 065
     Dates: start: 2005
  11. GRANULOKINE [Concomitant]
     Indication: NEUTROPENIA
     Route: 065
     Dates: start: 20130806, end: 20130810
  12. GRANULOKINE [Concomitant]
     Indication: FEBRILE NEUTROPENIA
     Route: 065
     Dates: start: 20130815
  13. DIPIRONE [Concomitant]
     Indication: OSTEOARTHRITIS
     Route: 065
     Dates: start: 20130719
  14. CARISOPRODOL [Concomitant]
     Indication: OSTEOARTHRITIS
     Route: 065
     Dates: start: 20130719
  15. CEFEPIME [Concomitant]
     Indication: FEBRILE NEUTROPENIA
     Route: 065
     Dates: start: 20130815
  16. TEICOPLANIN [Concomitant]
     Indication: FEBRILE NEUTROPENIA
     Route: 065
     Dates: start: 20130815
  17. BUSCOPAN COMP. [Concomitant]
     Indication: ABDOMINAL PAIN UPPER
     Route: 065
     Dates: start: 20130815

REACTIONS (1)
  - Neutropenic colitis [Recovered/Resolved]
